FAERS Safety Report 15403573 (Version 2)
Quarter: 2021Q2

REPORT INFORMATION
  Report Type: Report from Study
  Country: US (occurrence: US)
  Receive Date: 20180919
  Receipt Date: 20210524
  Transmission Date: 20210716
  Serious: Yes (Hospitalization, Other)
  Sender: FDA-Public Use
  Company Number: US-JNJFOC-20180920825

PATIENT
  Age: 91 Year
  Sex: Female

DRUGS (13)
  1. POTASSIUM CHLORIDE. [Concomitant]
     Active Substance: POTASSIUM CHLORIDE
  2. MULTIPLE VITAMINS [Concomitant]
     Active Substance: VITAMINS
  3. NITROSTAT [Concomitant]
     Active Substance: NITROGLYCERIN
  4. VITAMIN D2 [Concomitant]
     Active Substance: ERGOCALCIFEROL
  5. IMBRUVICA [Suspect]
     Active Substance: IBRUTINIB
     Indication: CHRONIC LYMPHOCYTIC LEUKAEMIA
     Route: 048
     Dates: start: 20180131, end: 2018
  6. ALBUTEROL. [Concomitant]
     Active Substance: ALBUTEROL
  7. XARELTO [Suspect]
     Active Substance: RIVAROXABAN
     Indication: PRODUCT USED FOR UNKNOWN INDICATION
     Route: 065
  8. IPRATROPIUM [Concomitant]
     Active Substance: IPRATROPIUM
  9. LACTULOSE. [Concomitant]
     Active Substance: LACTULOSE
  10. AMIODARONE [Concomitant]
     Active Substance: AMIODARONE
  11. FERROUS GLUCONATE [Concomitant]
     Active Substance: FERROUS GLUCONATE
  12. ALLOPURINOL. [Concomitant]
     Active Substance: ALLOPURINOL
  13. FUROSEMIDE. [Concomitant]
     Active Substance: FUROSEMIDE

REACTIONS (2)
  - Haemorrhage subcutaneous [Recovered/Resolved]
  - Hospitalisation [Unknown]
